FAERS Safety Report 4741555-7 (Version None)
Quarter: 2005Q3

REPORT INFORMATION
  Report Type: 
  Country: None (occurrence: None)
  Receive Date: 20050810
  Receipt Date: 20050708
  Transmission Date: 20060218
  Serious: Yes (Hospitalization)
  Sender: FDA-Public Use
  Company Number: DK-ABBOTT-05P-044-0305220-00

PATIENT
  Sex: Female
  Weight: 65.8 kg

DRUGS (4)
  1. REDUCTIL 10MG [Suspect]
     Indication: OBESITY
     Route: 048
     Dates: start: 20050501
  2. GLEEVEC [Concomitant]
     Indication: CHRONIC MYELOID LEUKAEMIA
  3. METOPIMAZINE [Concomitant]
     Indication: DRUG USE FOR UNKNOWN INDICATION
  4. KODEIN [Concomitant]
     Indication: DRUG USE FOR UNKNOWN INDICATION

REACTIONS (3)
  - DRUG RESISTANCE [None]
  - HEADACHE [None]
  - INADEQUATE ANALGESIA [None]
